FAERS Safety Report 6961480-0 (Version None)
Quarter: 2010Q3

REPORT INFORMATION
  Report Type: 
  Country: None (occurrence: None)
  Receive Date: 20100901
  Receipt Date: 20100826
  Transmission Date: 20110219
  Serious: Yes (Hospitalization)
  Sender: FDA-Public Use
  Company Number: PHHY2010NL56806

PATIENT
  Sex: Male

DRUGS (12)
  1. FORADIL [Suspect]
     Indication: CHRONIC OBSTRUCTIVE PULMONARY DISEASE
     Dosage: 2 DD, 1DF
     Dates: start: 20090218
  2. BERODUAL [Suspect]
     Indication: CHRONIC OBSTRUCTIVE PULMONARY DISEASE
     Dosage: 3 DD, 1 DF
     Dates: start: 20090218
  3. SPIRIVA [Suspect]
     Indication: CHRONIC OBSTRUCTIVE PULMONARY DISEASE
     Dosage: 2 DD, 1 DF
     Dates: start: 20090218
  4. FUROSEMIDE [Suspect]
     Indication: CHRONIC OBSTRUCTIVE PULMONARY DISEASE
     Dosage: 1 DD, 40 MG
     Dates: start: 20090218
  5. SPIRONOLACTONE [Suspect]
     Indication: CHRONIC OBSTRUCTIVE PULMONARY DISEASE
     Dosage: 1 DD, 25 MG
     Dates: start: 20090218
  6. ASPIRIN [Concomitant]
     Dosage: 1 DD, 80 MG
     Dates: start: 20100401
  7. PERSANTINE [Concomitant]
     Dosage: 2 DD, 200 MG
     Dates: start: 20100401
  8. SIMVASTATIN [Concomitant]
     Dosage: 1 DD, 40 MG
     Dates: start: 20100401
  9. PAROXETINE HCL [Concomitant]
     Dosage: 1 DD, 20 MG
     Dates: start: 20100101
  10. AMLODIPINE [Concomitant]
     Dosage: 1 DD, 5 MG
     Dates: start: 20090101
  11. APROVEL [Concomitant]
     Dosage: 1 DD, 300 MG
     Dates: start: 20090101
  12. METOPROLOL TARTRATE [Concomitant]
     Dosage: 2 DD, 50 MG
     Dates: start: 20090101

REACTIONS (4)
  - CEREBROVASCULAR ACCIDENT [None]
  - DRY MOUTH [None]
  - PNEUMONIA [None]
  - RHINORRHOEA [None]
